FAERS Safety Report 5541838-7 (Version None)
Quarter: 2007Q4

REPORT INFORMATION
  Report Type: 
  Country: None (occurrence: None)
  Receive Date: 20071205
  Receipt Date: 20071121
  Transmission Date: 20080405
  Serious: Yes (Hospitalization)
  Sender: FDA-Public Use
  Company Number: 2007AL005047

PATIENT
  Age: 73 Year
  Sex: Male

DRUGS (12)
  1. GABAPENTIN [Suspect]
     Dates: start: 20070522, end: 20070602
  2. ALVEDON [Concomitant]
  3. HERMOLEPSIN [Concomitant]
  4. KETOGAN NOVUM [Concomitant]
  5. TIPAROL [Concomitant]
  6. GLYTRIN [Concomitant]
  7. AMLODIPINE [Concomitant]
  8. OMEPRAZOLE [Concomitant]
  9. ENALAPRIL [Concomitant]
  10. SIMVASTATIN [Concomitant]
  11. TROMBYL [Concomitant]
  12. METOPROLOL [Concomitant]

REACTIONS (4)
  - ATAXIA [None]
  - BALANCE DISORDER [None]
  - CONFUSIONAL STATE [None]
  - DYSARTHRIA [None]
